FAERS Safety Report 19843529 (Version 1)
Quarter: 2021Q3

REPORT INFORMATION
  Report Type: Spontaneous
  Country: US (occurrence: US)
  Receive Date: 20210916
  Receipt Date: 20210916
  Transmission Date: 20211014
  Serious: Yes (Disabling, Other)
  Sender: FDA-Public Use
  Company Number: US-ASTRAZENECA-2021A722838

PATIENT
  Age: 21855 Day
  Sex: Female
  Weight: 84.4 kg

DRUGS (1)
  1. FASENRA [Suspect]
     Active Substance: BENRALIZUMAB
     Indication: ASTHMA
     Route: 058
     Dates: start: 20200201

REACTIONS (8)
  - Weight increased [Not Recovered/Not Resolved]
  - Dyspnoea [Unknown]
  - Body mass index increased [Unknown]
  - Asthenia [Unknown]
  - Pleural effusion [Unknown]
  - Somnolence [Unknown]
  - Hypersomnia [Unknown]
  - Hypometabolism [Not Recovered/Not Resolved]

NARRATIVE: CASE EVENT DATE: 20200501
